FAERS Safety Report 5036750-6 (Version None)
Quarter: 2006Q2

REPORT INFORMATION
  Report Type: 
  Country: None (occurrence: None)
  Receive Date: 20060616
  Receipt Date: 20060308
  Transmission Date: 20061013
  Serious: No
  Sender: FDA-Public Use
  Company Number: 2006RL000086

PATIENT
  Sex: Female

DRUGS (1)
  1. OMACOR [Suspect]
     Dosage: PO
     Route: 048

REACTIONS (1)
  - HYPERSENSITIVITY [None]
